FAERS Safety Report 25082590 (Version 2)
Quarter: 2025Q2

REPORT INFORMATION
  Report Type: Spontaneous
  Country: US (occurrence: US)
  Receive Date: 20250317
  Receipt Date: 20250514
  Transmission Date: 20250716
  Serious: No
  Sender: SANOFI AVENTIS
  Company Number: US-SA-2025SA075715

PATIENT
  Age: 67 Year
  Sex: Female
  Weight: 105.91 kg

DRUGS (15)
  1. KEVZARA [Suspect]
     Active Substance: SARILUMAB
     Indication: Polymyalgia rheumatica
     Dosage: 200 MG, QOW
     Route: 058
     Dates: start: 20250201
  2. PREDNISONE [Concomitant]
     Active Substance: PREDNISONE
  3. NEBIVOLOL [Concomitant]
     Active Substance: NEBIVOLOL
  4. FAMOTIDINE [Concomitant]
     Active Substance: FAMOTIDINE
  5. CETIRIZINE HYDROCHLORIDE [Concomitant]
     Active Substance: CETIRIZINE HYDROCHLORIDE
  6. VITAMINS NOS [Concomitant]
     Active Substance: VITAMINS
  7. ATORVASTATIN CALCIUM [Concomitant]
     Active Substance: ATORVASTATIN CALCIUM
  8. LOSARTAN POTASSIUM [Concomitant]
     Active Substance: LOSARTAN POTASSIUM
  9. HYDROCHLOROTHIAZIDE [Concomitant]
     Active Substance: HYDROCHLOROTHIAZIDE
  10. CALCIUM [Concomitant]
     Active Substance: CALCIUM
  11. BIOTIN [Concomitant]
     Active Substance: BIOTIN
  12. GABAPENTIN [Concomitant]
     Active Substance: GABAPENTIN
  13. ALPHA LIPOIC ACID [Concomitant]
     Active Substance: .ALPHA.-LIPOIC ACID
  14. NYSTATIN [Concomitant]
     Active Substance: NYSTATIN
  15. NYSTATIN [Concomitant]
     Active Substance: NYSTATIN

REACTIONS (7)
  - Feeling hot [Recovered/Resolved]
  - Weight increased [Unknown]
  - Peripheral swelling [Unknown]
  - Joint swelling [Unknown]
  - Emotional disorder [Unknown]
  - Pain [Unknown]
  - Fungal skin infection [Unknown]

NARRATIVE: CASE EVENT DATE: 20250101
